FAERS Safety Report 9424442 (Version 1)
Quarter: 2013Q3

REPORT INFORMATION
  Report Type: Spontaneous
  Country: US (occurrence: US)
  Receive Date: 20130729
  Receipt Date: 20130729
  Transmission Date: 20140515
  Serious: Yes (Other)
  Sender: FDA-Public Use
  Company Number: US-ASTELLAS-2013US007836

PATIENT
  Sex: Female

DRUGS (3)
  1. TARCEVA [Suspect]
     Indication: LUNG NEOPLASM MALIGNANT
     Dosage: UNK
     Route: 065
     Dates: start: 201303
  2. TARCEVA [Suspect]
     Indication: BONE CANCER
  3. TARCEVA [Suspect]
     Indication: HEPATIC CANCER

REACTIONS (2)
  - Off label use [Unknown]
  - Visual acuity reduced [Unknown]
